FAERS Safety Report 8940591 (Version 1)
Quarter: 2012Q4

REPORT INFORMATION
  Report Type: 
  Country: NZ (occurrence: NZ)
  Receive Date: 20121203
  Receipt Date: 20121203
  Transmission Date: 20130627
  Serious: Yes (Hospitalization, Other)
  Sender: FDA-Public Use
  Company Number: PHHY2012NZ109889

PATIENT
  Sex: Male

DRUGS (3)
  1. CICLOSPORIN [Suspect]
  2. METHOTREXATE [Concomitant]
     Indication: PSORIASIS
     Dosage: 10 mg, QW
     Route: 048
     Dates: start: 1984, end: 2012
  3. ETANERCEPT [Concomitant]

REACTIONS (8)
  - Myocardial infarction [Unknown]
  - Metabolic syndrome [Unknown]
  - Blood triglycerides increased [Unknown]
  - Hypertension [Unknown]
  - Blood cholesterol increased [Unknown]
  - Blood creatinine increased [Unknown]
  - Hepatic enzyme increased [Unknown]
  - Muscle spasms [Unknown]
